FAERS Safety Report 8596346-6 (Version None)
Quarter: 2012Q3

REPORT INFORMATION
  Report Type: 
  Country: None (occurrence: None)
  Receive Date: 20120815
  Receipt Date: 20120802
  Transmission Date: 20120928
  Serious: Yes (Other)
  Sender: FDA-Public Use
  Company Number: CA-ROCHE-1096544

PATIENT
  Sex: Male
  Weight: 104.42 kg

DRUGS (6)
  1. ACTEMRA [Suspect]
     Dates: start: 20120314
  2. ACTEMRA [Suspect]
     Indication: RHEUMATOID ARTHRITIS
     Route: 042
     Dates: start: 20120119
  3. PREDNISONE TAB [Concomitant]
  4. ACTEMRA [Suspect]
     Dates: start: 20120604
  5. ZOPICLONE [Concomitant]
  6. LEFLUNOMIDE [Concomitant]

REACTIONS (2)
  - DRUG INEFFECTIVE [None]
  - JOINT STIFFNESS [None]
